FAERS Safety Report 25299636 (Version 2)
Quarter: 2025Q2

REPORT INFORMATION
  Report Type: Spontaneous
  Country: US (occurrence: US)
  Receive Date: 20250512
  Receipt Date: 20250522
  Transmission Date: 20250716
  Serious: Yes (Life-Threatening, Hospitalization)
  Sender: TEVA
  Company Number: US-TEVA-VS-3329173

PATIENT
  Sex: Female

DRUGS (2)
  1. EPINEPHRINE [Suspect]
     Active Substance: EPINEPHRINE
     Indication: Endodontic procedure
     Route: 065
  2. ARTICAINE [Suspect]
     Active Substance: ARTICAINE
     Indication: Endodontic procedure
     Route: 065

REACTIONS (11)
  - Local anaesthetic systemic toxicity [Recovering/Resolving]
  - Cardiac arrest [Recovering/Resolving]
  - Pulseless electrical activity [Recovering/Resolving]
  - Ventricular fibrillation [Recovering/Resolving]
  - Neurologic neglect syndrome [Recovering/Resolving]
  - Atrial fibrillation [Recovering/Resolving]
  - Arrhythmia [Recovering/Resolving]
  - Seizure [Recovering/Resolving]
  - Torsade de pointes [Recovering/Resolving]
  - Mydriasis [Recovering/Resolving]
  - Cardiogenic shock [Recovering/Resolving]
